FAERS Safety Report 9391366 (Version 2)
Quarter: 2013Q3

REPORT INFORMATION
  Report Type: Report from Study
  Country: US (occurrence: US)
  Receive Date: 20130709
  Receipt Date: 20130722
  Transmission Date: 20140515
  Serious: Yes (Hospitalization)
  Sender: FDA-Public Use
  Company Number: US-TEVA-417682USA

PATIENT
  Age: 59 Year
  Sex: Male

DRUGS (10)
  1. BENDAMUSTINE [Suspect]
     Indication: MANTLE CELL LYMPHOMA STAGE IV
     Dosage: UNKNOWN/D
     Route: 042
  2. RITUXIMAB [Suspect]
     Indication: MANTLE CELL LYMPHOMA STAGE IV
     Dosage: UNKNOWN/D
     Route: 042
     Dates: start: 20120829
  3. IBRUTINIB [Suspect]
     Indication: MANTLE CELL LYMPHOMA STAGE IV
     Dosage: 280 MILLIGRAM DAILY;
     Route: 048
     Dates: start: 20120829, end: 20130505
  4. LEXAPRO [Concomitant]
     Dosage: 10 MILLIGRAM DAILY;
  5. HYDROMORPHONE [Concomitant]
     Dosage: 12 MILLIGRAM DAILY; AS NECESSARY
     Route: 048
  6. ASPIRIN [Concomitant]
     Dosage: 81 MILLIGRAM DAILY;
  7. GLYCERYL TRINITRATE [Concomitant]
     Route: 060
  8. CYCLOBENZAPRINE [Concomitant]
     Dosage: 15 MILLIGRAM DAILY;
     Route: 048
  9. OXYCODONE [Concomitant]
     Dosage: .8333 MILLIGRAM DAILY; AS NECESSARY
  10. VALACICLOVIR [Concomitant]
     Dosage: 500 MILLIGRAM DAILY;

REACTIONS (2)
  - Enterocolitis [Recovered/Resolved]
  - Febrile neutropenia [Recovered/Resolved]
